FAERS Safety Report 4456892-3 (Version None)
Quarter: 2004Q3

REPORT INFORMATION
  Report Type: 
  Country: None (occurrence: None)
  Receive Date: 20040921
  Receipt Date: 20040907
  Transmission Date: 20050211
  Serious: No
  Sender: FDA-Public Use
  Company Number: 2004-BP-07221NB

PATIENT
  Age: 77 Year
  Sex: Male

DRUGS (4)
  1. MICARDIS        (TELMISARTAN) (KA) [Suspect]
     Indication: HYPERTENSION
     Dosage: 20 MG (20 MG) PO
     Route: 048
     Dates: start: 20040611, end: 20040625
  2. CYANAMIDE        (CALCIUM CARBIMIDE) (LOP) [Suspect]
     Indication: ALCOHOLISM
     Dosage: PE
     Dates: start: 20040502, end: 20040615
  3. NORVASC [Concomitant]
  4. HALCION [Concomitant]

REACTIONS (1)
  - DERMATITIS EXFOLIATIVE [None]
